FAERS Safety Report 7427723-4 (Version None)
Quarter: 2011Q2

REPORT INFORMATION
  Report Type: 
  Country: None (occurrence: None)
  Receive Date: 20110411
  Receipt Date: 20110331
  Transmission Date: 20111010
  Serious: Yes (Death)
  Sender: FDA-Public Use
  Company Number: UTC-006072

PATIENT
  Age: 73 Year
  Sex: Male

DRUGS (1)
  1. TYVASO [Suspect]
     Indication: PULMONARY HYPERTENSION
     Dosage: 72 MCG (18 MCG, 4 IN 1 D), INHALATION
     Route: 055
     Dates: start: 20090120, end: 20100410

REACTIONS (3)
  - GASTROINTESTINAL DISORDER [None]
  - CONDITION AGGRAVATED [None]
  - HYPOTENSION [None]
